FAERS Safety Report 5472842-5 (Version None)
Quarter: 2007Q4

REPORT INFORMATION
  Report Type: 
  Country: None (occurrence: None)
  Receive Date: 20071001
  Receipt Date: 20061217
  Transmission Date: 20080405
  Serious: No
  Sender: FDA-Public Use
  Company Number: US-ASTRAZENECA-2006UW28120

PATIENT
  Age: 43 Year
  Sex: Female
  Weight: 66.7 kg

DRUGS (2)
  1. ARIMIDEX [Suspect]
     Indication: BREAST CANCER FEMALE
     Route: 048
  2. VALTREX [Concomitant]

REACTIONS (4)
  - ARTHRALGIA [None]
  - HOT FLUSH [None]
  - ILL-DEFINED DISORDER [None]
  - METRORRHAGIA [None]
